FAERS Safety Report 5357146-3 (Version None)
Quarter: 2007Q2

REPORT INFORMATION
  Report Type: 
  Country: None (occurrence: None)
  Receive Date: 20070614
  Receipt Date: 20070605
  Transmission Date: 20071010
  Serious: Yes (Other)
  Sender: FDA-Public Use
  Company Number: US-AMGEN-STX227845

PATIENT
  Sex: Male
  Weight: 76.7 kg

DRUGS (7)
  1. ENBREL [Suspect]
     Indication: PSORIATIC ARTHROPATHY
     Route: 058
     Dates: start: 20040709, end: 20070110
  2. ENBREL [Suspect]
     Indication: PSORIASIS
  3. AZULFIDINE [Concomitant]
     Route: 048
  4. PREVACID [Concomitant]
     Route: 048
  5. TOPROL-XL [Concomitant]
     Route: 048
  6. DIOVAN [Concomitant]
     Route: 048
  7. ASPIRIN [Concomitant]
     Route: 048

REACTIONS (10)
  - ASTHENIA [None]
  - CAROTID BRUIT [None]
  - DECREASED APPETITE [None]
  - HEADACHE [None]
  - LYMPHADENOPATHY [None]
  - MALAISE [None]
  - NAUSEA [None]
  - PAIN IN EXTREMITY [None]
  - PNEUMONITIS [None]
  - PROSTATIC SPECIFIC ANTIGEN INCREASED [None]
